FAERS Safety Report 25336147 (Version 1)
Quarter: 2025Q2

REPORT INFORMATION
  Report Type: Spontaneous
  Country: TR (occurrence: TR)
  Receive Date: 20250520
  Receipt Date: 20250520
  Transmission Date: 20250716
  Serious: Yes (Other)
  Sender: GILEAD
  Company Number: TR-GILEAD-2025-0713584

PATIENT
  Age: 34 Year
  Sex: Female

DRUGS (3)
  1. TRODELVY [Suspect]
     Active Substance: SACITUZUMAB GOVITECAN-HZIY
     Indication: Triple negative breast cancer
     Route: 065
     Dates: start: 202207
  2. ERIBULIN [Concomitant]
     Active Substance: ERIBULIN
  3. TRASTUZUMAB DERUXTECAN [Concomitant]
     Active Substance: TRASTUZUMAB DERUXTECAN

REACTIONS (1)
  - Disease progression [Unknown]
